FAERS Safety Report 24458811 (Version 1)
Quarter: 2024Q4

REPORT INFORMATION
  Report Type: Spontaneous
  Country: IN (occurrence: IN)
  Receive Date: 20241018
  Receipt Date: 20241018
  Transmission Date: 20250115
  Serious: No
  Sender: ROCHE
  Company Number: IN-ROCHE-3524886

PATIENT
  Age: 33 Year
  Sex: Female

DRUGS (13)
  1. RITUXIMAB [Suspect]
     Active Substance: RITUXIMAB
     Indication: Pemphigus
     Dosage: IN 400 ML NORMAL SALINE WAS INFUSED OVER 3 HOURS
     Route: 042
  2. PREDNISOLONE [Concomitant]
     Active Substance: PREDNISOLONE
  3. DEXAMETHASONE [Concomitant]
     Active Substance: DEXAMETHASONE
  4. MOMETASONE [Concomitant]
     Active Substance: MOMETASONE
  5. PHENIRAMINE [Concomitant]
     Active Substance: PHENIRAMINE
  6. HYDROCORTISONE [Concomitant]
     Active Substance: HYDROCORTISONE
  7. PANTOPRAZOLE [Concomitant]
     Active Substance: PANTOPRAZOLE
  8. ACETAMINOPHEN [Concomitant]
     Active Substance: ACETAMINOPHEN
  9. AZATHIOPRINE [Concomitant]
     Active Substance: AZATHIOPRINE
  10. ALENDRONATE [Concomitant]
     Active Substance: ALENDRONATE SODIUM
  11. VITAMIN D3 [Concomitant]
     Active Substance: CHOLECALCIFEROL
  12. CALCIUM [Concomitant]
     Active Substance: CALCIUM
  13. FERROUS SULFATE [Concomitant]
     Active Substance: FERROUS SULFATE

REACTIONS (1)
  - Proteus infection [Unknown]
